FAERS Safety Report 7708907-4 (Version None)
Quarter: 2011Q3

REPORT INFORMATION
  Report Type: 
  Country: None (occurrence: None)
  Receive Date: 20110825
  Receipt Date: 20110817
  Transmission Date: 20111222
  Serious: Yes (Other)
  Sender: FDA-Public Use
  Company Number: GB-SANOFI-AVENTIS-2011SA052795

PATIENT
  Age: 82 Year
  Sex: Male

DRUGS (7)
  1. AMLODIPINE [Concomitant]
     Route: 065
  2. ATORVASTATIN [Concomitant]
     Route: 065
  3. LANSOPRAZOLE [Concomitant]
     Route: 065
  4. CLOPIDOGREL [Concomitant]
     Route: 065
  5. RANITIDINE [Concomitant]
     Route: 065
  6. MULTAQ [Suspect]
     Indication: ATRIAL FIBRILLATION
     Route: 048
     Dates: start: 20110517, end: 20110524
  7. RAMIPRIL [Concomitant]
     Route: 065

REACTIONS (1)
  - DYSPNOEA [None]
